FAERS Safety Report 8815884 (Version 2)
Quarter: 2014Q3

REPORT INFORMATION
  Report Type: Spontaneous
  Country: US (occurrence: US)
  Receive Date: 20120928
  Receipt Date: 20140724
  Transmission Date: 20150326
  Serious: Yes (Hospitalization, Other)
  Sender: FDA-Public Use
  Company Number: US-009507513-2008-180467-NL

PATIENT
  Sex: Female
  Weight: 72.6 kg

DRUGS (1)
  1. NUVARING [Suspect]
     Active Substance: ETHINYL ESTRADIOL\ETONOGESTREL
     Indication: MENSTRUATION IRREGULAR
     Dosage: DOSE TEXT: Q 25 DAYS, CONTINUING: NO
     Dates: start: 20040426, end: 20040712

REACTIONS (16)
  - Pneumonia [Unknown]
  - Explorative laparotomy [Unknown]
  - Gastrooesophageal reflux disease [Unknown]
  - Off label use [Unknown]
  - Uterine dilation and curettage [Unknown]
  - Leiomyoma [Unknown]
  - Dysfunctional uterine bleeding [Unknown]
  - Neck mass [Unknown]
  - Subdural haematoma [Unknown]
  - Lymphoproliferative disorder [Unknown]
  - Menorrhagia [Unknown]
  - Cerebral venous thrombosis [Recovered/Resolved with Sequelae]
  - Urinary tract infection [Unknown]
  - Hysterectomy [Unknown]
  - Cervicitis [Unknown]
  - Adenomyosis [Unknown]

NARRATIVE: CASE EVENT DATE: 20040710
